FAERS Safety Report 10522785 (Version 1)
Quarter: 2014Q4

REPORT INFORMATION
  Report Type: Spontaneous
  Country: TR (occurrence: TR)
  Receive Date: 20141016
  Receipt Date: 20141016
  Transmission Date: 20150528
  Serious: Yes (Other)
  Sender: FDA-Public Use
  Company Number: TR-MYLANLABS-2014M1007412

PATIENT

DRUGS (1)
  1. TRAMADOL [Suspect]
     Active Substance: TRAMADOL
     Dosage: 3 DROPS
     Route: 065

REACTIONS (4)
  - Transaminases increased [Not Recovered/Not Resolved]
  - Toxicity to various agents [None]
  - Wrong drug administered [Unknown]
  - Somnolence [Unknown]
